FAERS Safety Report 24011103 (Version 1)
Quarter: 2024Q2

REPORT INFORMATION
  Report Type: Spontaneous
  Country: US (occurrence: US)
  Receive Date: 20240625
  Receipt Date: 20240625
  Transmission Date: 20240716
  Serious: No
  Sender: FDA-Public Use
  Company Number: US-009507513-2406USA002981

PATIENT
  Sex: Female

DRUGS (1)
  1. KEYTRUDA [Suspect]
     Active Substance: PEMBROLIZUMAB
     Indication: Malignant melanoma
     Dosage: 200 MILLIGRAM, Q3W
     Route: 042

REACTIONS (4)
  - Stomatitis [Not Recovered/Not Resolved]
  - Vulvitis [Recovered/Resolved]
  - Trichoglossia [Not Recovered/Not Resolved]
  - Rash [Recovered/Resolved]
